FAERS Safety Report 9966823 (Version 1)
Quarter: 2014Q1

REPORT INFORMATION
  Report Type: Report from Study
  Country: US (occurrence: US)
  Receive Date: 20140305
  Receipt Date: 20140305
  Transmission Date: 20141002
  Serious: No
  Sender: FDA-Public Use
  Company Number: US-ABBVIE-13P-163-1120604-00

PATIENT
  Sex: Female
  Weight: 61.74 kg

DRUGS (2)
  1. HUMIRA [Suspect]
     Indication: RHEUMATOID ARTHRITIS
     Dates: start: 201302
  2. METHOTREXATE [Concomitant]
     Indication: RHEUMATOID ARTHRITIS

REACTIONS (8)
  - Device failure [Recovered/Resolved]
  - Arthralgia [Not Recovered/Not Resolved]
  - Tooth infection [Recovered/Resolved]
  - Gingivitis [Recovered/Resolved]
  - Toothache [Recovered/Resolved]
  - Poor quality sleep [Not Recovered/Not Resolved]
  - Joint swelling [Not Recovered/Not Resolved]
  - Respiratory tract inflammation [Not Recovered/Not Resolved]
